FAERS Safety Report 6015560-7 (Version None)
Quarter: 2008Q4

REPORT INFORMATION
  Report Type: 
  Country: None (occurrence: None)
  Receive Date: 20081222
  Receipt Date: 20081212
  Transmission Date: 20090506
  Serious: Yes (Other)
  Sender: FDA-Public Use
  Company Number: PHHO2008NO14812

PATIENT
  Sex: Male

DRUGS (3)
  1. ZOLEDRONATE T29581+SOLINJ+BM [Suspect]
     Indication: METASTASES TO BONE
     Dosage: 4 MG, Q3MO
     Route: 042
     Dates: start: 20060308
  2. VITAMIN D [Concomitant]
     Dosage: UNK
     Dates: start: 20060308
  3. CALCIUM [Concomitant]
     Dosage: UNK
     Dates: start: 20060308

REACTIONS (1)
  - FEMORAL NECK FRACTURE [None]
